FAERS Safety Report 13539018 (Version 8)
Quarter: 2017Q4

REPORT INFORMATION
  Report Type: Report from Study
  Country: US (occurrence: US)
  Receive Date: 20170512
  Receipt Date: 20171214
  Transmission Date: 20180320
  Serious: Yes (Death, Hospitalization, Other)
  Sender: FDA-Public Use
  Company Number: US-GILEAD-2017-0272194

PATIENT
  Age: 64 Year
  Sex: Male
  Weight: 68 kg

DRUGS (18)
  1. AMBRISENTAN [Suspect]
     Active Substance: AMBRISENTAN
     Indication: HEART DISEASE CONGENITAL
  2. ADCIRCA [Concomitant]
     Active Substance: TADALAFIL
  3. AMBRISENTAN [Suspect]
     Active Substance: AMBRISENTAN
     Indication: CONNECTIVE TISSUE DISORDER
  4. COLACE [Concomitant]
     Active Substance: DOCUSATE SODIUM
  5. K-LOR [Concomitant]
     Active Substance: POTASSIUM CHLORIDE
  6. AMBRISENTAN [Suspect]
     Active Substance: AMBRISENTAN
     Indication: PULMONARY ARTERIAL HYPERTENSION
     Dosage: 10 MG, QD
     Route: 048
     Dates: start: 20111227, end: 20171124
  7. AMBRISENTAN [Suspect]
     Active Substance: AMBRISENTAN
     Indication: BILIARY CIRRHOSIS
  8. NORVASC [Concomitant]
     Active Substance: AMLODIPINE BESYLATE
  9. PRILOSEC [Concomitant]
     Active Substance: OMEPRAZOLE MAGNESIUM
  10. REMODULIN [Concomitant]
     Active Substance: TREPROSTINIL
  11. ALBUTEROL                          /00139501/ [Concomitant]
     Active Substance: ALBUTEROL
  12. VELETRI [Concomitant]
     Active Substance: EPOPROSTENOL
  13. ASA [Concomitant]
     Active Substance: ASPIRIN
  14. AMBRISENTAN [Suspect]
     Active Substance: AMBRISENTAN
     Indication: SCLERODERMA
  15. AMBRISENTAN [Suspect]
     Active Substance: AMBRISENTAN
     Indication: DYSPNOEA EXERTIONAL
  16. LANOXIN [Concomitant]
     Active Substance: DIGOXIN
  17. PREDNISONE. [Concomitant]
     Active Substance: PREDNISONE
  18. TYVASO [Concomitant]
     Active Substance: TREPROSTINIL

REACTIONS (13)
  - Chronic respiratory failure [Fatal]
  - Chest pain [Recovered/Resolved]
  - Hypoxia [Unknown]
  - Pulmonary arterial hypertension [Fatal]
  - Acute respiratory failure [Unknown]
  - Cardiogenic shock [Fatal]
  - Peripheral swelling [Unknown]
  - Cardiac failure congestive [Recovered/Resolved]
  - Hypotension [Unknown]
  - Dyspnoea [Unknown]
  - Gait disturbance [Unknown]
  - Oedema [Unknown]
  - Dyspnoea [Recovered/Resolved]

NARRATIVE: CASE EVENT DATE: 20170417
